FAERS Safety Report 22535306 (Version 1)
Quarter: 2023Q2

REPORT INFORMATION
  Report Type: Spontaneous
  Country: US (occurrence: US)
  Receive Date: 20230608
  Receipt Date: 20230608
  Transmission Date: 20230722
  Serious: No
  Sender: FDA-Public Use
  Company Number: US-TEVA-2023-US-2890564

PATIENT
  Sex: Female

DRUGS (5)
  1. MODAFINIL [Suspect]
     Active Substance: MODAFINIL
     Indication: Fatigue
     Route: 065
     Dates: start: 2017
  2. MODAFINIL [Suspect]
     Active Substance: MODAFINIL
     Indication: Product used for unknown indication
     Route: 065
  3. MODAFINIL [Suspect]
     Active Substance: MODAFINIL
     Indication: Somnolence
     Route: 065
     Dates: start: 20230517
  4. DEMEROL [Concomitant]
     Active Substance: MEPERIDINE HYDROCHLORIDE
     Indication: Product used for unknown indication
     Route: 065
  5. AMBIEN [Concomitant]
     Active Substance: ZOLPIDEM TARTRATE
     Indication: Product used for unknown indication
     Route: 065

REACTIONS (13)
  - Sleep apnoea syndrome [Unknown]
  - Stress [Unknown]
  - Anxiety [Unknown]
  - Drug ineffective [Unknown]
  - Dysarthria [Unknown]
  - Feeling abnormal [Unknown]
  - Depressed mood [Unknown]
  - Arthritis [Unknown]
  - Iodine allergy [Unknown]
  - Gluten sensitivity [Unknown]
  - Blood glucose abnormal [Unknown]
  - Product supply issue [Unknown]
  - Off label use [Unknown]

NARRATIVE: CASE EVENT DATE: 20230501
